FAERS Safety Report 8230804-9 (Version None)
Quarter: 2012Q1

REPORT INFORMATION
  Report Type: 
  Country: None (occurrence: None)
  Receive Date: 20120323
  Receipt Date: 20120319
  Transmission Date: 20120608
  Serious: Yes (Death)
  Sender: FDA-Public Use
  Company Number: US-SHIRE-ALL1-2012-01512

PATIENT
  Sex: Female

DRUGS (1)
  1. PENTASA [Suspect]
     Indication: INTESTINAL OBSTRUCTION
     Dosage: 500 MG, UNKNOWN
     Route: 048

REACTIONS (4)
  - ABNORMAL LOSS OF WEIGHT [None]
  - ENDOMETRIAL CANCER RECURRENT [None]
  - METASTATIC NEOPLASM [None]
  - OFF LABEL USE [None]
